FAERS Safety Report 10197744 (Version 8)
Quarter: 2015Q4

REPORT INFORMATION
  Report Type: Spontaneous
  Country: US (occurrence: US)
  Receive Date: 20140527
  Receipt Date: 20151014
  Transmission Date: 20160304
  Serious: Yes (Hospitalization, Disabling, Other)
  Sender: FDA-Public Use
  Company Number: US-009507513-1405USA011468

PATIENT
  Sex: Female
  Weight: 44.82 kg

DRUGS (5)
  1. ALENDRONATE SODIUM. [Suspect]
     Active Substance: ALENDRONATE SODIUM
     Indication: OSTEOPOROSIS
     Dosage: 70 MG, UNK
     Dates: start: 20080604, end: 20090404
  2. FOSAMAX [Suspect]
     Active Substance: ALENDRONATE SODIUM
     Dosage: 70 MG, QW
     Route: 048
     Dates: start: 200110, end: 201011
  3. ALENDRONATE SODIUM. [Suspect]
     Active Substance: ALENDRONATE SODIUM
     Dosage: 70 MG, UNK
     Dates: start: 20090929, end: 20110926
  4. HORMONES (UNSPECIFIED) [Concomitant]
     Active Substance: UNSPECIFIED INGREDIENT
     Indication: PRODUCT USED FOR UNKNOWN INDICATION
     Dosage: UNK
     Dates: start: 1994, end: 2008
  5. FOSAMAX [Suspect]
     Active Substance: ALENDRONATE SODIUM
     Indication: OSTEOPOROSIS
     Dosage: 10 MG, QD
     Route: 048
     Dates: start: 1995, end: 200110

REACTIONS (41)
  - Joint destruction [Unknown]
  - Jaw disorder [Unknown]
  - Ovarian disorder [Unknown]
  - Constipation [Unknown]
  - Arthropathy [Unknown]
  - Knee arthroplasty [Unknown]
  - Cellulitis [Recovered/Resolved]
  - Urinary incontinence [Unknown]
  - Hypertension [Unknown]
  - Cardiac valve disease [Unknown]
  - Staphylococcal infection [Unknown]
  - Osteoarthritis [Not Recovered/Not Resolved]
  - Device failure [Unknown]
  - Femur fracture [Unknown]
  - Open reduction of fracture [Unknown]
  - Joint arthroplasty [Unknown]
  - Dependence [Unknown]
  - Pulmonary hypertension [Unknown]
  - Arthropathy [Unknown]
  - Hip arthroplasty [Unknown]
  - Femur fracture [Recovered/Resolved]
  - Hyperparathyroidism [Unknown]
  - Oral disorder [Unknown]
  - Spinal fracture [Unknown]
  - Pain [Not Recovered/Not Resolved]
  - Uterine disorder [Unknown]
  - Arthrodesis [Unknown]
  - Pyoderma gangrenosum [Unknown]
  - Tooth disorder [Unknown]
  - Gait disturbance [Unknown]
  - Anaemia postoperative [Unknown]
  - Gallbladder disorder [Unknown]
  - Limb deformity [Unknown]
  - Arthropathy [Unknown]
  - Nasopharyngitis [Recovered/Resolved]
  - Influenza [Recovered/Resolved]
  - Malignant melanoma [Unknown]
  - Hip arthroplasty [Unknown]
  - Myopathy [Unknown]
  - Blood glucose increased [Unknown]
  - Asthenia [Unknown]

NARRATIVE: CASE EVENT DATE: 1995
